FAERS Safety Report 11086659 (Version 6)
Quarter: 2015Q4

REPORT INFORMATION
  Report Type: Report from Study
  Country: US (occurrence: US)
  Receive Date: 20150430
  Receipt Date: 20151029
  Transmission Date: 20160304
  Serious: Yes (Life-Threatening, Hospitalization)
  Sender: FDA-Public Use
  Company Number: 2015TASUS000765

PATIENT
  Age: 28 Year
  Sex: Female
  Weight: 87.75 kg

DRUGS (12)
  1. LEVAQUIN LEVA-PAK [Concomitant]
     Indication: PRODUCT USED FOR UNKNOWN INDICATION
     Dosage: UNK
  2. SPRINTEC [Concomitant]
     Active Substance: ETHINYL ESTRADIOL\NORGESTIMATE
     Indication: PRODUCT USED FOR UNKNOWN INDICATION
     Dosage: UNK
  3. HETLIOZ [Suspect]
     Active Substance: TASIMELTEON
     Dosage: 20 MG, QHS
     Route: 048
     Dates: start: 201503, end: 20150402
  4. LEXAPRO [Concomitant]
     Active Substance: ESCITALOPRAM OXALATE
     Indication: PRODUCT USED FOR UNKNOWN INDICATION
     Dosage: 10 MG, UNK
     Dates: end: 20150418
  5. PREDNISONE. [Concomitant]
     Active Substance: PREDNISONE
     Indication: PRODUCT USED FOR UNKNOWN INDICATION
     Dosage: UNK
     Route: 065
  6. ROZEREM [Concomitant]
     Active Substance: RAMELTEON
     Indication: SLEEP DISORDER
     Dosage: UNK
  7. MONONESSA [Concomitant]
     Active Substance: ETHINYL ESTRADIOL\NORGESTIMATE
     Indication: PRODUCT USED FOR UNKNOWN INDICATION
     Dosage: UNK
  8. HETLIOZ [Suspect]
     Active Substance: TASIMELTEON
     Indication: CIRCADIAN RHYTHM SLEEP DISORDER
     Dosage: 20 MG, QHS
     Route: 048
     Dates: start: 20150211
  9. LEXAPRO [Concomitant]
     Active Substance: ESCITALOPRAM OXALATE
     Dosage: 20 UNK, UNK
     Route: 048
     Dates: start: 20150419
  10. AZITHROMYCIN [Concomitant]
     Active Substance: AZITHROMYCIN ANHYDROUS
     Indication: PRODUCT USED FOR UNKNOWN INDICATION
     Dosage: UNK
  11. HETLIOZ [Suspect]
     Active Substance: TASIMELTEON
     Dosage: 20 MG, QHS
     Route: 048
     Dates: start: 20150404
  12. BENZONATATE. [Concomitant]
     Active Substance: BENZONATATE
     Indication: PRODUCT USED FOR UNKNOWN INDICATION
     Dosage: UNK
     Route: 065

REACTIONS (12)
  - Weight decreased [Recovered/Resolved]
  - Somnolence [Not Recovered/Not Resolved]
  - Hypersomnia [Not Recovered/Not Resolved]
  - Poor quality sleep [Not Recovered/Not Resolved]
  - Nasopharyngitis [Recovered/Resolved]
  - Poor quality sleep [Unknown]
  - Hunger [Recovered/Resolved]
  - Drug dose omission [Unknown]
  - Respiratory failure [Recovered/Resolved]
  - Asthma [Recovered/Resolved]
  - Amnesia [Recovered/Resolved]
  - Drug effect decreased [Unknown]

NARRATIVE: CASE EVENT DATE: 2015
